FAERS Safety Report 10466713 (Version 1)
Quarter: 2014Q3

REPORT INFORMATION
  Report Type: Spontaneous
  Country: GB (occurrence: None)
  Receive Date: 20140918
  Receipt Date: 20140918
  Transmission Date: 20150326
  Serious: Yes (Other)
  Sender: FDA-Public Use
  Company Number: 2532771

PATIENT
  Age: 61 Year
  Sex: Female
  Weight: 73 kg

DRUGS (2)
  1. (PAMIDRONIC ACID) [Suspect]
     Active Substance: PAMIDRONIC ACID
     Indication: OSTEOPENIA
     Route: 042
     Dates: start: 20140819, end: 20140819
  2. IBUPROFEN. [Concomitant]
     Active Substance: IBUPROFEN

REACTIONS (5)
  - Arthralgia [None]
  - Anaphylactic reaction [None]
  - Pyrexia [None]
  - Chills [None]
  - Swollen tongue [None]

NARRATIVE: CASE EVENT DATE: 20140820
